FAERS Safety Report 7621381-1 (Version None)
Quarter: 2011Q3

REPORT INFORMATION
  Report Type: 
  Country: None (occurrence: None)
  Receive Date: 20110719
  Receipt Date: 20110707
  Transmission Date: 20111222
  Serious: Yes (Hospitalization)
  Sender: FDA-Public Use
  Company Number: DE-PFIZER INC-2011152904

PATIENT
  Age: 55 Year
  Sex: Female
  Weight: 75 kg

DRUGS (1)
  1. AROMASIN [Suspect]
     Indication: HORMONE THERAPY
     Dosage: 25 MG, 1X/DAY
     Route: 048
     Dates: start: 20100512

REACTIONS (1)
  - ATRIAL FIBRILLATION [None]
